FAERS Safety Report 20552966 (Version 1)
Quarter: 2022Q1

REPORT INFORMATION
  Report Type: Spontaneous
  Country: US (occurrence: US)
  Receive Date: 20220304
  Receipt Date: 20220304
  Transmission Date: 20220423
  Serious: Yes (Hospitalization)
  Sender: FDA-Public Use
  Company Number: US-LUPIN PHARMACEUTICALS INC.-2022-02916

PATIENT
  Age: 5 Month
  Sex: Female

DRUGS (4)
  1. HYDROCORTISONE [Suspect]
     Active Substance: HYDROCORTISONE
     Indication: Adrenogenital syndrome
     Dosage: 25 MILLIGRAM, STRESS DOSING
     Route: 042
  2. HYDROCORTISONE [Suspect]
     Active Substance: HYDROCORTISONE
     Dosage: 13 MILLIGRAM/SQ. METER, QD, MAINTENANCE DOSE
     Route: 065
  3. FLUDROCORTISONE [Suspect]
     Active Substance: FLUDROCORTISONE
     Indication: Adrenogenital syndrome
     Dosage: 0.25 MG, QD, HIGH-DOSE
     Route: 065
  4. SODIUM CHLORIDE [Suspect]
     Active Substance: SODIUM CHLORIDE
     Indication: Adrenogenital syndrome
     Dosage: 130 MILLIEQUIVALENT, QD

REACTIONS (2)
  - Hypertension [Recovering/Resolving]
  - Left ventricular hypertrophy [Unknown]
